FAERS Safety Report 4849898-3 (Version None)
Quarter: 2005Q4

REPORT INFORMATION
  Report Type: 
  Country: None (occurrence: None)
  Receive Date: 20051114
  Receipt Date: 20050907
  Transmission Date: 20060501
  Serious: Yes (Other)
  Sender: FDA-Public Use
  Company Number: 20444

PATIENT
  Age: 50 Year
  Weight: 60 kg

DRUGS (3)
  1. PROPOFOL [Suspect]
     Indication: INSOMNIA
     Dosage: 180UG--250UG/KG/MIN
     Dates: start: 20050830
  2. VERSED [Concomitant]
  3. FENTANYL [Concomitant]

REACTIONS (1)
  - DRUG INEFFECTIVE [None]
